FAERS Safety Report 10472918 (Version 3)
Quarter: 2014Q4

REPORT INFORMATION
  Report Type: Report from Study
  Country: US (occurrence: US)
  Receive Date: 20140924
  Receipt Date: 20141029
  Transmission Date: 20150528
  Serious: Yes (Other)
  Sender: FDA-Public Use
  Company Number: US-SA-2014SA130948

PATIENT
  Age: 67 Year
  Sex: Female
  Weight: 97.5 kg

DRUGS (2)
  1. LANTUS [Suspect]
     Active Substance: INSULIN GLARGINE
     Indication: DIABETES MELLITUS
     Dosage: DOSE:80 UNIT(S)
     Route: 065
     Dates: start: 2009
  2. HUMALOG [Concomitant]
     Active Substance: INSULIN LISPRO

REACTIONS (2)
  - Ovarian cancer [Unknown]
  - Hernia repair [Unknown]

NARRATIVE: CASE EVENT DATE: 201304
